FAERS Safety Report 9778993 (Version 1)
Quarter: 2013Q4

REPORT INFORMATION
  Report Type: Report from Study
  Country: CA (occurrence: CA)
  Receive Date: 20131223
  Receipt Date: 20131223
  Transmission Date: 20140711
  Serious: Yes (Other)
  Sender: FDA-Public Use
  Company Number: CA-BAYER-2013-153990

PATIENT
  Age: 26 Year
  Sex: Female

DRUGS (7)
  1. BETASERON [Suspect]
     Indication: MULTIPLE SCLEROSIS
     Dosage: UNK
     Dates: start: 20100601, end: 20110901
  2. BETASERON [Suspect]
     Indication: MULTIPLE SCLEROSIS
     Dosage: UNK UNK, QOD
     Dates: start: 20120730
  3. NORETHINDRONE [Concomitant]
     Indication: CONTRACEPTION
  4. VITAMIN D [Concomitant]
  5. CALCIUM [Concomitant]
  6. MAGNESIUM CITRATE [Concomitant]
  7. VITAMIN B12 [Concomitant]

REACTIONS (6)
  - Blindness transient [Recovered/Resolved]
  - Abasia [Recovered/Resolved]
  - Pyrexia [Recovered/Resolved]
  - Feeling cold [Recovered/Resolved]
  - Metrorrhagia [Recovered/Resolved]
  - Dizziness [Recovered/Resolved]
